FAERS Safety Report 8564984-2 (Version None)
Quarter: 2012Q3

REPORT INFORMATION
  Report Type: 
  Country: None (occurrence: None)
  Receive Date: 20120803
  Receipt Date: 20120801
  Transmission Date: 20120928
  Serious: Yes (Death)
  Sender: FDA-Public Use
  Company Number: FR-ABBOTT-12P-056-0963076-00

PATIENT
  Sex: Female

DRUGS (12)
  1. MABTHERA [Suspect]
     Route: 042
     Dates: start: 20100525, end: 20100525
  2. MABTHERA [Suspect]
     Indication: RHEUMATOID ARTHRITIS
     Route: 042
     Dates: start: 20100505, end: 20100505
  3. ALDACTONE [Concomitant]
     Indication: HYPERTENSION
  4. HUMIRA [Suspect]
     Indication: RHEUMATOID ARTHRITIS
     Route: 058
     Dates: start: 20061001, end: 20100501
  5. CALCIUM [Concomitant]
     Indication: PRODUCT USED FOR UNKNOWN INDICATION
  6. HUMIRA [Suspect]
  7. METHOTREXATE [Suspect]
     Indication: RHEUMATOID ARTHRITIS
     Route: 048
     Dates: start: 19970101
  8. VITAMINE D DCI [Concomitant]
     Indication: PRODUCT USED FOR UNKNOWN INDICATION
  9. ENBREL [Suspect]
     Indication: RHEUMATOID ARTHRITIS
     Route: 058
     Dates: start: 20051201, end: 20061001
  10. METHOTREXATE [Suspect]
     Dates: start: 19990101, end: 20110801
  11. MABTHERA [Suspect]
     Dates: start: 20110401, end: 20110401
  12. LEVOTHYROXINE SODIUM [Concomitant]
     Indication: AUTOIMMUNE THYROIDITIS

REACTIONS (4)
  - MIXED HEPATOCELLULAR CHOLANGIOCARCINOMA [None]
  - METASTASES TO LIVER [None]
  - METASTASES TO BONE [None]
  - METASTASES TO LUNG [None]
